FAERS Safety Report 6286592-9 (Version None)
Quarter: 2009Q3

REPORT INFORMATION
  Report Type: 
  Country: None (occurrence: None)
  Receive Date: 20090728
  Receipt Date: 20090716
  Transmission Date: 20100115
  Serious: Yes (Hospitalization)
  Sender: FDA-Public Use
  Company Number: PHHY2009CN26154

PATIENT
  Age: 21 Year
  Sex: Male

DRUGS (5)
  1. SEBIVO [Suspect]
     Indication: HEPATITIS B
     Dosage: UNK
     Route: 048
  2. SEBIVO [Suspect]
     Indication: HEPATITIS C
  3. PEGASYS [Concomitant]
     Indication: HEPATITIS C
     Dosage: UNK
     Dates: start: 20080801, end: 20090401
  4. HEPSERA [Concomitant]
     Indication: HEPATITIS B
     Dosage: UNK
     Dates: start: 20080801
  5. RIBAVIRIN [Concomitant]
     Indication: HEPATITIS C
     Dosage: UNK
     Dates: start: 20080801, end: 20090101

REACTIONS (11)
  - ANURIA [None]
  - ASPARTATE AMINOTRANSFERASE INCREASED [None]
  - ASTHENIA [None]
  - BLOOD LACTIC ACID INCREASED [None]
  - LOSS OF CONSCIOUSNESS [None]
  - MYALGIA [None]
  - MYOGLOBINURIA [None]
  - OEDEMA PERIPHERAL [None]
  - RENAL IMPAIRMENT [None]
  - RHABDOMYOLYSIS [None]
  - SYNCOPE [None]
